FAERS Safety Report 11103071 (Version 5)
Quarter: 2015Q3

REPORT INFORMATION
  Report Type: Spontaneous
  Country: CL (occurrence: CL)
  Receive Date: 20150511
  Receipt Date: 20150720
  Transmission Date: 20151125
  Serious: Yes (Life-Threatening, Hospitalization)
  Sender: FDA-Public Use
  Company Number: CL-SA-2015SA061023

PATIENT
  Age: 42 Year
  Sex: Male
  Weight: 75.4 kg

DRUGS (4)
  1. SOLOSTAR [Suspect]
     Active Substance: DEVICE
  2. LANTUS SOLOSTAR [Suspect]
     Active Substance: INSULIN GLARGINE
     Indication: TYPE 1 DIABETES MELLITUS
     Dosage: DOSE:18 UNIT(S)
     Route: 058
  3. APIDRA [Suspect]
     Active Substance: INSULIN GLULISINE
     Indication: TYPE 1 DIABETES MELLITUS
     Dosage: DOSE: DEPENDING UPON VALUES OF CARBOHYDRATES AND CAPILLARY GLYCEMIC
     Route: 058
  4. CLIKSTAR [Suspect]
     Active Substance: CLIKSTAR

REACTIONS (8)
  - Humerus fracture [Recovering/Resolving]
  - Off label use [Unknown]
  - Seizure [Recovered/Resolved]
  - Hypoglycaemia [Recovered/Resolved]
  - Fall [Unknown]
  - Wrong drug administered [Unknown]
  - Blood glucose abnormal [Unknown]
  - Upper limb fracture [Recovering/Resolving]

NARRATIVE: CASE EVENT DATE: 201411
